FAERS Safety Report 20795464 (Version 2)
Quarter: 2022Q2

REPORT INFORMATION
  Report Type: Spontaneous
  Country: CH (occurrence: None)
  Receive Date: 20220506
  Receipt Date: 20220519
  Transmission Date: 20220721
  Serious: Yes (Death, Hospitalization, Other)
  Sender: FDA-Public Use
  Company Number: CH-ROCHE-3086347

PATIENT
  Age: 35 Year
  Sex: Female

DRUGS (1)
  1. OBINUTUZUMAB [Suspect]
     Active Substance: OBINUTUZUMAB
     Indication: Diffuse large B-cell lymphoma
     Route: 042

REACTIONS (4)
  - Neoplasm progression [Fatal]
  - Sepsis [Unknown]
  - Nasopharyngitis [Unknown]
  - Septic shock [Unknown]

NARRATIVE: CASE EVENT DATE: 20220422
